FAERS Safety Report 22247218 (Version 1)
Quarter: 2023Q2

REPORT INFORMATION
  Report Type: Spontaneous
  Country: CN (occurrence: CN)
  Receive Date: 20230424
  Receipt Date: 20230424
  Transmission Date: 20230722
  Serious: Yes (Death, Hospitalization, Other)
  Sender: FDA-Public Use
  Company Number: CN-STRIDES ARCOLAB LIMITED-2023SP005953

PATIENT
  Age: 55 Year
  Sex: Female

DRUGS (9)
  1. DOXYCYCLINE [Suspect]
     Active Substance: DOXYCYCLINE
     Indication: Anti-infective therapy
     Dosage: UNK
     Route: 065
     Dates: start: 202011
  2. CASPOFUNGIN [Suspect]
     Active Substance: CASPOFUNGIN
     Indication: Infection prophylaxis
     Dosage: UNK, INJECTION
     Route: 042
     Dates: start: 202011, end: 202011
  3. MYCOPHENOLATE MOFETIL [Suspect]
     Active Substance: MYCOPHENOLATE MOFETIL
     Indication: Prophylaxis against graft versus host disease
     Dosage: UNK
     Route: 065
     Dates: start: 202011
  4. TACROLIMUS [Suspect]
     Active Substance: TACROLIMUS
     Indication: Prophylaxis against graft versus host disease
     Dosage: UNK
     Route: 048
     Dates: start: 202011
  5. CEFMINOX [Suspect]
     Active Substance: CEFMINOX
     Indication: Infection prophylaxis
     Dosage: UNK, INJECTION
     Route: 042
     Dates: start: 202011, end: 202011
  6. VORICONAZOLE [Suspect]
     Active Substance: VORICONAZOLE
     Indication: Anti-infective therapy
     Dosage: UNK
     Route: 065
     Dates: start: 202011
  7. MEROPENEM [Suspect]
     Active Substance: MEROPENEM
     Indication: Infection prophylaxis
     Dosage: UNK
     Route: 065
     Dates: start: 202011
  8. MEROPENEM [Suspect]
     Active Substance: MEROPENEM
     Indication: Anti-infective therapy
  9. GANCICLOVIR [Suspect]
     Active Substance: GANCICLOVIR
     Indication: Infection prophylaxis
     Dosage: UNK, INJECTION
     Route: 042
     Dates: start: 202011, end: 202011

REACTIONS (3)
  - Death [Fatal]
  - Bronchopulmonary aspergillosis [Unknown]
  - Drug ineffective [Unknown]

NARRATIVE: CASE EVENT DATE: 20200101
